FAERS Safety Report 7071294-1 (Version None)
Quarter: 2010Q4

REPORT INFORMATION
  Report Type: 
  Country: None (occurrence: None)
  Receive Date: 20101029
  Receipt Date: 20100914
  Transmission Date: 20110411
  Serious: No
  Sender: FDA-Public Use
  Company Number: A0881103A

PATIENT
  Age: 62 Year
  Sex: Female

DRUGS (6)
  1. FLOVENT [Suspect]
     Indication: ASTHMA
     Dosage: 1PUFF TWICE PER DAY
     Route: 055
     Dates: start: 20100701
  2. MULTI-VITAMIN [Concomitant]
  3. FISH OIL [Concomitant]
  4. VITAMIN E [Concomitant]
  5. DILTIAZEM [Concomitant]
  6. PRILOSEC [Concomitant]

REACTIONS (4)
  - EATING DISORDER [None]
  - ERYTHEMA [None]
  - GINGIVAL DISORDER [None]
  - SWELLING [None]
